FAERS Safety Report 21918679 (Version 2)
Quarter: 2023Q1

REPORT INFORMATION
  Report Type: Report from Study
  Country: FR (occurrence: None)
  Receive Date: 20230127
  Receipt Date: 20230219
  Transmission Date: 20230418
  Serious: Yes (Hospitalization)
  Sender: FDA-Public Use
  Company Number: FR-ROCHE-3085777

PATIENT
  Age: 67 Year
  Sex: Female

DRUGS (12)
  1. ENTRECTINIB [Suspect]
     Active Substance: ENTRECTINIB
     Indication: Metastatic neoplasm
     Dosage: DATE OF LAST DOSE PRIOR TO EVENT 25/APR/2022
     Route: 048
     Dates: start: 20211015
  2. PREDNISOLONE [Concomitant]
     Active Substance: PREDNISOLONE
  3. BACTRIM [Concomitant]
     Active Substance: SULFAMETHOXAZOLE\TRIMETHOPRIM
  4. FOLIC ACID [Concomitant]
     Active Substance: FOLIC ACID
  5. LEVOTHYROXINE [Concomitant]
     Active Substance: LEVOTHYROXINE
  6. LANSOPRAZOLE [Concomitant]
     Active Substance: LANSOPRAZOLE
  7. CITALOPRAM [Concomitant]
     Active Substance: CITALOPRAM HYDROBROMIDE
  8. XANAX [Concomitant]
     Active Substance: ALPRAZOLAM
  9. PREGABALIN [Concomitant]
     Active Substance: PREGABALIN
  10. LOVENOX [Concomitant]
     Active Substance: ENOXAPARIN SODIUM
  11. DEXAMETHASONE [Concomitant]
     Active Substance: DEXAMETHASONE
  12. LOPERAMIDE [Concomitant]
     Active Substance: LOPERAMIDE

REACTIONS (2)
  - Diarrhoea [Recovered/Resolved]
  - Renal failure [Recovered/Resolved]

NARRATIVE: CASE EVENT DATE: 20220424
